FAERS Safety Report 14216333 (Version 1)
Quarter: 2017Q4

REPORT INFORMATION
  Report Type: Spontaneous
  Country: US (occurrence: US)
  Receive Date: 20171122
  Receipt Date: 20171122
  Transmission Date: 20180321
  Serious: Yes (Other)
  Sender: FDA-Public Use
  Company Number: US-SUNOVION-2017SUN005035

PATIENT
  Age: 21 Year
  Sex: Female

DRUGS (1)
  1. APTIOM [Suspect]
     Active Substance: ESLICARBAZEPINE ACETATE
     Indication: EPILEPSY
     Dosage: 400 MG, UNK
     Route: 048

REACTIONS (2)
  - Seizure [Unknown]
  - Vomiting [Unknown]

NARRATIVE: CASE EVENT DATE: 20171112
